FAERS Safety Report 7051395-4 (Version None)
Quarter: 2010Q4

REPORT INFORMATION
  Report Type: 
  Country: None (occurrence: None)
  Receive Date: 20101014
  Receipt Date: 20101008
  Transmission Date: 20110411
  Serious: Yes (Life-Threatening, Hospitalization)
  Sender: FDA-Public Use
  Company Number: AE-1010-324 (WATSON 2010-13236)

PATIENT
  Age: 24 Year
  Sex: Female

DRUGS (2)
  1. LIDODERM [Suspect]
     Dosage: 1/4 PATCH
     Dates: start: 20090909, end: 20090918
  2. LIDOCAINE [Suspect]
     Dosage: 1/4 PATCH
     Dates: start: 20090909, end: 20090918

REACTIONS (3)
  - CAESAREAN SECTION [None]
  - DRUG EXPOSURE DURING PREGNANCY [None]
  - HELLP SYNDROME [None]
